FAERS Safety Report 5712894-8 (Version None)
Quarter: 2008Q2

REPORT INFORMATION
  Report Type: 
  Country: None (occurrence: None)
  Receive Date: 20080422
  Receipt Date: 20080418
  Transmission Date: 20081010
  Serious: Yes (Hospitalization)
  Sender: FDA-Public Use
  Company Number: D0056968A

PATIENT

DRUGS (3)
  1. REQUIP [Suspect]
     Indication: PARKINSON'S DISEASE
     Dosage: 3MG THREE TIMES PER DAY
     Route: 048
     Dates: start: 20070707
  2. CARBIDOPA + LEVODOPA [Suspect]
     Route: 048
  3. MOTILIUM [Suspect]
     Route: 048
     Dates: start: 20070707

REACTIONS (1)
  - MEDICAL DEVICE PAIN [None]
